FAERS Safety Report 5635928-8 (Version None)
Quarter: 2008Q1

REPORT INFORMATION
  Report Type: 
  Country: None (occurrence: None)
  Receive Date: 20080224
  Receipt Date: 20080220
  Transmission Date: 20080703
  Serious: Yes (Death)
  Sender: FDA-Public Use
  Company Number: PHBS2006JP11304

PATIENT
  Sex: Female

DRUGS (3)
  1. FEMARA [Suspect]
     Indication: BREAST CANCER
     Dosage: 2.5 MG/DAY
     Route: 048
     Dates: start: 20060701
  2. FARESTON ^SCHERING-PLOUGH^ [Concomitant]
  3. ANTINEOPLASTIC AGENTS [Concomitant]
     Route: 065

REACTIONS (2)
  - SEPSIS [None]
  - SOMNOLENCE [None]
